FAERS Safety Report 17488149 (Version 1)
Quarter: 2020Q1

REPORT INFORMATION
  Report Type: Spontaneous
  Country: US (occurrence: US)
  Receive Date: 20200220
  Receipt Date: 20200220
  Transmission Date: 20200409
  Serious: No
  Sender: FDA-Public Use
  Company Number: None

PATIENT
  Age: 59 Year
  Sex: Male
  Weight: 102 kg

DRUGS (1)
  1. INSULIN (INSULIN, GLARGINE, HUMAN 100UNT/ML INJ) [Suspect]
     Active Substance: INSULIN GLARGINE
     Dosage: ?          OTHER DOSE:10 UNITS;?
     Route: 058
     Dates: start: 20171114, end: 20180109

REACTIONS (1)
  - Lethargy [None]

NARRATIVE: CASE EVENT DATE: 20180109
